FAERS Safety Report 7731986-5 (Version None)
Quarter: 2011Q3

REPORT INFORMATION
  Report Type: 
  Country: None (occurrence: None)
  Receive Date: 20110906
  Receipt Date: 20110720
  Transmission Date: 20111222
  Serious: No
  Sender: FDA-Public Use
  Company Number: US-AMGEN-USASP2011036901

PATIENT
  Sex: Female

DRUGS (4)
  1. CALCIUM CARBONATE [Concomitant]
  2. PROLIA [Suspect]
     Indication: OSTEOPOROSIS POSTMENOPAUSAL
     Dosage: UNK
     Dates: start: 20101201
  3. VITAMIN D [Concomitant]
  4. ANTIHYPERTENSIVES [Concomitant]

REACTIONS (4)
  - MUSCLE SPASMS [None]
  - NEURALGIA [None]
  - GASTRIC DISORDER [None]
  - PAIN IN EXTREMITY [None]
